FAERS Safety Report 11682006 (Version 1)
Quarter: 2015Q4

REPORT INFORMATION
  Report Type: Other
  Country: FR (occurrence: FR)
  Receive Date: 20151029
  Receipt Date: 20151029
  Transmission Date: 20160304
  Serious: Yes (Hospitalization)
  Sender: FDA-Public Use
  Company Number: FR-MYLANLABS-2015M1035589

PATIENT

DRUGS (5)
  1. PERINDOPRIL SANDOZ [Concomitant]
     Active Substance: PERINDOPRIL
     Indication: PRODUCT USED FOR UNKNOWN INDICATION
     Dosage: 4 MG, QD
     Dates: start: 20150730
  2. LEVETIRACETAM MYLAN 100 MG/ML, SOLUTION ? DILUER POUR PERFUSION [Suspect]
     Active Substance: LEVETIRACETAM
     Indication: PRODUCT USED FOR UNKNOWN INDICATION
     Dosage: 2 UNK, UNK
     Route: 042
     Dates: start: 20150727, end: 20150815
  3. LEVETIRACETAM MYLAN [Concomitant]
     Active Substance: LEVETIRACETAM
     Indication: PRODUCT USED FOR UNKNOWN INDICATION
     Dosage: 750 MG, QD
     Dates: start: 20150815, end: 20150815
  4. LEVETIRACETAM MYLAN [Concomitant]
     Active Substance: LEVETIRACETAM
     Dosage: 250 MG, QD
     Dates: start: 20150829, end: 20150902
  5. LEVETIRACETAM MYLAN [Concomitant]
     Active Substance: LEVETIRACETAM
     Dosage: 500 MG, QD
     Dates: start: 20150816

REACTIONS (1)
  - Hyponatraemia [Recovered/Resolved]

NARRATIVE: CASE EVENT DATE: 20150729
